FAERS Safety Report 9858372 (Version 1)
Quarter: 2014Q1

REPORT INFORMATION
  Report Type: Spontaneous
  Country: GB (occurrence: GB)
  Receive Date: 20140131
  Receipt Date: 20140131
  Transmission Date: 20141002
  Serious: Yes (Other)
  Sender: FDA-Public Use
  Company Number: GB-DRREDDYS-GER/UKI/14/0037629

PATIENT
  Sex: Female

DRUGS (2)
  1. LAMOTRIGINE [Suspect]
     Indication: EPILEPSY
  2. SUDAFED [Interacting]
     Indication: NASOPHARYNGITIS

REACTIONS (3)
  - Nasopharyngitis [Unknown]
  - Convulsion [Unknown]
  - Drug interaction [Unknown]
